FAERS Safety Report 15551083 (Version 1)
Quarter: 2018Q4

REPORT INFORMATION
  Report Type: Spontaneous
  Country: US (occurrence: US)
  Receive Date: 20181022
  Receipt Date: 20181022
  Transmission Date: 20190205
  Serious: No
  Sender: FDA-Public Use
  Company Number: None

PATIENT
  Age: 93 Year
  Sex: Female

DRUGS (2)
  1. CARTIA [Concomitant]
  2. TOBRAMYCIN  300MG-5ML [Suspect]
     Active Substance: TOBRAMYCIN
     Indication: BRONCHIECTASIS
     Dosage: 5 ML TWICE DAILY FOR 28 DAYS BID NEBULIZER
     Dates: start: 20180629

REACTIONS (2)
  - Lung infection [None]
  - Dyspnoea [None]

NARRATIVE: CASE EVENT DATE: 2018
